FAERS Safety Report 7823675-3 (Version None)
Quarter: 2011Q4

REPORT INFORMATION
  Report Type: 
  Country: None (occurrence: None)
  Receive Date: 20111014
  Receipt Date: 20111011
  Transmission Date: 20120403
  Serious: Yes (Death)
  Sender: FDA-Public Use
  Company Number: 201111317

PATIENT

DRUGS (4)
  1. LIORESAL [Suspect]
     Indication: MUSCLE SPASTICITY
     Dosage: MCG, DAILY, INTRATHECAL
     Route: 037
  2. BUPIVACAINE HCL [Concomitant]
  3. CLONIDINE [Concomitant]
  4. DILAUDID [Concomitant]

REACTIONS (2)
  - PRE-EXISTING DISEASE [None]
  - CONDITION AGGRAVATED [None]
